FAERS Safety Report 9909759 (Version 1)
Quarter: 2014Q1

REPORT INFORMATION
  Report Type: Spontaneous
  Country: US (occurrence: None)
  Receive Date: 20140218
  Receipt Date: 20140218
  Transmission Date: 20141002
  Serious: Yes (Disabling)
  Sender: FDA-Public Use
  Company Number: None

PATIENT
  Age: 54 Year
  Sex: Female
  Weight: 67.13 kg

DRUGS (3)
  1. VENLAFAXINE [Suspect]
     Indication: BIPOLAR DISORDER
     Route: 048
     Dates: end: 20140213
  2. VENLAFAXINE [Suspect]
     Indication: BIPOLAR I DISORDER
     Route: 048
     Dates: end: 20140213
  3. VENLAFAXINE [Suspect]
     Indication: SCHIZOPHRENIA
     Route: 048
     Dates: end: 20140213

REACTIONS (5)
  - Pruritus generalised [None]
  - Stress [None]
  - Blister [None]
  - Anxiety [None]
  - Infection [None]
